FAERS Safety Report 7202233-8 (Version None)
Quarter: 2010Q4

REPORT INFORMATION
  Report Type: 
  Country: None (occurrence: None)
  Receive Date: 20101229
  Receipt Date: 20101216
  Transmission Date: 20110411
  Serious: Yes (Disabling, Other)
  Sender: FDA-Public Use
  Company Number: PHHY2010FR87291

PATIENT
  Sex: Female

DRUGS (3)
  1. ZOMETA [Suspect]
     Indication: METASTASES TO BONE
     Dosage: 1 DF EVERY 15 DAYS
     Dates: start: 20080101
  2. ZOMETA [Suspect]
     Dosage: 1 DF EVERY 15 DAYS
     Dates: start: 20080201
  3. LYTOS [Suspect]
     Indication: METASTASES TO BONE
     Dosage: 2 DF DAILY
     Dates: start: 20100101

REACTIONS (4)
  - INFLAMMATION [None]
  - OSTEONECROSIS OF JAW [None]
  - PAIN [None]
  - TOOTH EXTRACTION [None]
